FAERS Safety Report 9084182 (Version 3)
Quarter: 2013Q1

REPORT INFORMATION
  Report Type: Spontaneous
  Country: US (occurrence: US)
  Receive Date: 20130131
  Receipt Date: 20130306
  Transmission Date: 20140127
  Serious: Yes (Other)
  Sender: FDA-Public Use
  Company Number: US-SANOFI-AVENTIS-2013SA006185

PATIENT
  Age: 71 Year
  Sex: Female

DRUGS (1)
  1. LANTUS [Suspect]
     Indication: TYPE 1 DIABETES MELLITUS
     Route: 058

REACTIONS (3)
  - Atrial fibrillation [Not Recovered/Not Resolved]
  - Blood glucose decreased [Recovered/Resolved]
  - Blood glucose increased [Unknown]
